FAERS Safety Report 8291534-0 (Version None)
Quarter: 2012Q2

REPORT INFORMATION
  Report Type: 
  Country: None (occurrence: None)
  Receive Date: 20120417
  Receipt Date: 20120410
  Transmission Date: 20120825
  Serious: Yes (Other)
  Sender: FDA-Public Use
  Company Number: US-CELGENEUS-163-21880-12041174

PATIENT

DRUGS (6)
  1. RITUXIMAB [Suspect]
     Dosage: 50 MILLIGRAM/SQ. METER
     Route: 065
  2. REVLIMID [Suspect]
     Dosage: 2.5 MILLIGRAM
     Route: 048
  3. RITUXIMAB [Suspect]
     Dosage: 375 MILLIGRAM/SQ. METER
     Route: 065
  4. ASPIRIN [Concomitant]
     Dosage: 81 MILLIGRAM
     Route: 065
  5. RITUXIMAB [Suspect]
     Dosage: 325 MILLIGRAM/SQ. METER
     Route: 065
  6. ALLOPURINOL [Concomitant]
     Dosage: 300 MILLIGRAM
     Route: 065

REACTIONS (15)
  - THROMBOCYTOPENIA [None]
  - ALANINE AMINOTRANSFERASE INCREASED [None]
  - PNEUMONIA [None]
  - TUMOUR FLARE [None]
  - NEUTROPENIA [None]
  - PULMONARY EMBOLISM [None]
  - DEEP VEIN THROMBOSIS [None]
  - ANAEMIA [None]
  - ASPARTATE AMINOTRANSFERASE INCREASED [None]
  - FEBRILE NEUTROPENIA [None]
  - INFUSION RELATED REACTION [None]
  - RASH [None]
  - FATIGUE [None]
  - HYPOPHOSPHATAEMIA [None]
  - HYPOCALCAEMIA [None]
